FAERS Safety Report 14152874 (Version 1)
Quarter: 2017Q4

REPORT INFORMATION
  Report Type: Spontaneous
  Country: US (occurrence: US)
  Receive Date: 20171102
  Receipt Date: 20171102
  Transmission Date: 20180321
  Serious: No
  Sender: FDA-Public Use
  Company Number: US-GLAXOSMITHKLINE-US2017167434

PATIENT

DRUGS (1)
  1. EPZICOM [Suspect]
     Active Substance: ABACAVIR SULFATE\LAMIVUDINE

REACTIONS (2)
  - Wrong technique in product usage process [Unknown]
  - Oral candidiasis [Unknown]
